FAERS Safety Report 12507707 (Version 1)
Quarter: 2016Q2

REPORT INFORMATION
  Report Type: Spontaneous
  Country: US (occurrence: None)
  Receive Date: 20160628
  Receipt Date: 20160628
  Transmission Date: 20160815
  Serious: Yes (Disabling, Other)
  Sender: FDA-Public Use
  Company Number: None

PATIENT
  Age: 67 Year
  Sex: Male

DRUGS (13)
  1. DEXAMETHASONE. [Concomitant]
     Active Substance: DEXAMETHASONE
  2. IBUPROFEN. [Concomitant]
     Active Substance: IBUPROFEN
  3. VALIUM [Concomitant]
     Active Substance: DIAZEPAM
  4. DIPHENHYDRAMINE. [Concomitant]
     Active Substance: DIPHENHYDRAMINE
  5. MULTIVITAMIN [Concomitant]
     Active Substance: VITAMINS
  6. ZOMETA [Concomitant]
     Active Substance: ZOLEDRONIC ACID
  7. SUTENT [Suspect]
     Active Substance: SUNITINIB MALATE
     Indication: RENAL CELL CARCINOMA
     Dosage: 50 MG DAILY X28DAYS THEN 14DAYS OFF BY MOUTH
     Route: 048
     Dates: start: 20160610, end: 20160622
  8. CILOSTAZOL. [Concomitant]
     Active Substance: CILOSTAZOL
  9. LISINOPRIL-HCTZ [Concomitant]
     Active Substance: HYDROCHLOROTHIAZIDE\LISINOPRIL
  10. LIPITOR [Concomitant]
     Active Substance: ATORVASTATIN CALCIUM
  11. NORCO [Concomitant]
     Active Substance: ACETAMINOPHEN\HYDROCODONE BITARTRATE
  12. COLACE [Concomitant]
     Active Substance: DOCUSATE SODIUM
  13. MS CONTIN [Concomitant]
     Active Substance: MORPHINE SULFATE

REACTIONS (2)
  - Cerebrovascular accident [None]
  - Hypertension [None]
